FAERS Safety Report 8011884-2 (Version None)
Quarter: 2011Q4

REPORT INFORMATION
  Report Type: 
  Country: None (occurrence: None)
  Receive Date: 20111228
  Receipt Date: 20111213
  Transmission Date: 20120403
  Serious: Yes (Other)
  Sender: FDA-Public Use
  Company Number: GB-ABBOTT-11P-167-0886674-00

PATIENT
  Sex: Male

DRUGS (2)
  1. TESTOSTERONE [Suspect]
     Indication: BLOOD TESTOSTERONE DECREASED
     Route: 062
     Dates: start: 20111101
  2. TESTOSTERONE [Suspect]
     Indication: LOSS OF LIBIDO
     Route: 062
     Dates: start: 20090101, end: 20111101

REACTIONS (11)
  - DRUG INEFFECTIVE [None]
  - LETHARGY [None]
  - PROSTATIC PAIN [None]
  - POLLAKIURIA [None]
  - GROIN PAIN [None]
  - GENITAL PAIN [None]
  - CONFUSIONAL STATE [None]
  - LOSS OF LIBIDO [None]
  - MIDDLE INSOMNIA [None]
  - MYALGIA [None]
  - ASTHENIA [None]
